FAERS Safety Report 9196798 (Version 1)
Quarter: 2013Q1

REPORT INFORMATION
  Report Type: Spontaneous
  Country: US (occurrence: US)
  Receive Date: 20130328
  Receipt Date: 20130328
  Transmission Date: 20140127
  Serious: Yes (Other)
  Sender: FDA-Public Use
  Company Number: CHPA2013US004991

PATIENT
  Age: 70 Year
  Sex: Male

DRUGS (1)
  1. MYOFLEX ANALGESIC CREME [Suspect]
     Indication: BACK INJURY
     Dosage: UNK, UNK
     Route: 061
     Dates: start: 2008

REACTIONS (3)
  - Back injury [Unknown]
  - Off label use [Unknown]
  - Therapeutic response unexpected [Unknown]
